FAERS Safety Report 13859537 (Version 1)
Quarter: 2017Q3

REPORT INFORMATION
  Report Type: Spontaneous
  Country: US (occurrence: US)
  Receive Date: 20170811
  Receipt Date: 20170811
  Transmission Date: 20171127
  Serious: No
  Sender: FDA-Public Use
  Company Number: US-PFIZER INC-2017343344

PATIENT
  Sex: Female

DRUGS (2)
  1. LIPITOR [Suspect]
     Active Substance: ATORVASTATIN CALCIUM
     Dosage: 40 MG, DAILY
  2. FENTANYL CITRATE. [Suspect]
     Active Substance: FENTANYL CITRATE
     Dosage: 50 MCC/HR

REACTIONS (28)
  - Fatigue [Unknown]
  - Neck pain [Unknown]
  - Musculoskeletal stiffness [Unknown]
  - Oedema [Unknown]
  - Synovitis [Unknown]
  - Paraesthesia [Unknown]
  - Depression [Unknown]
  - Sleep disorder [Unknown]
  - Headache [Unknown]
  - Chest pain [Unknown]
  - Back pain [Unknown]
  - Disturbance in attention [Unknown]
  - Dry mouth [Unknown]
  - Nasal congestion [Unknown]
  - Flatulence [Unknown]
  - Constipation [Unknown]
  - Muscle spasms [Unknown]
  - Arthralgia [Unknown]
  - Myalgia [Unknown]
  - Muscular weakness [Unknown]
  - Heart rate increased [Unknown]
  - Joint swelling [Unknown]
  - Dry eye [Unknown]
  - Pain [Unknown]
  - Hypoaesthesia [Unknown]
  - Nausea [Unknown]
  - Dyspepsia [Unknown]
  - Abdominal pain upper [Unknown]
